FAERS Safety Report 7633656-0 (Version None)
Quarter: 2011Q3

REPORT INFORMATION
  Report Type: 
  Country: None (occurrence: None)
  Receive Date: 20110725
  Receipt Date: 20110722
  Transmission Date: 20111222
  Serious: Yes (Hospitalization)
  Sender: FDA-Public Use
  Company Number: US-GLAXOSMITHKLINE-A0938015A

PATIENT
  Age: 64 Year
  Sex: Female

DRUGS (8)
  1. EXFORGE [Concomitant]
  2. IBUPROFEN (ADVIL) [Concomitant]
  3. FUROSEMIDE [Suspect]
     Indication: FLUID RETENTION
     Route: 048
     Dates: end: 20110301
  4. NEXIUM [Concomitant]
  5. ATIVAN [Concomitant]
  6. SOMA [Concomitant]
  7. PROMACTA [Suspect]
     Indication: IDIOPATHIC THROMBOCYTOPENIC PURPURA
     Route: 048
     Dates: start: 20080101
  8. ATENOLOL [Concomitant]

REACTIONS (7)
  - EPISTAXIS [None]
  - PLATELET COUNT DECREASED [None]
  - DRUG INTERACTION [None]
  - DRUG INEFFECTIVE [None]
  - INTESTINAL HAEMORRHAGE [None]
  - PETECHIAE [None]
  - THROMBOPHLEBITIS [None]
